FAERS Safety Report 13110861 (Version 1)
Quarter: 2017Q1

REPORT INFORMATION
  Report Type: Spontaneous
  Country: US (occurrence: US)
  Receive Date: 20170112
  Receipt Date: 20170112
  Transmission Date: 20170428
  Serious: No
  Sender: FDA-Public Use
  Company Number: US-009507513-1701USA004233

PATIENT
  Age: 27 Year
  Sex: Female
  Weight: 58.96 kg

DRUGS (1)
  1. NEXPLANON [Suspect]
     Active Substance: ETONOGESTREL
     Indication: CONTRACEPTION
     Dosage: IMPLANT ON LEFT ARM / 3 YEAR IMPLANT
     Route: 059
     Dates: start: 20140217

REACTIONS (2)
  - Musculoskeletal pain [Unknown]
  - Implant site pain [Unknown]
